FAERS Safety Report 4968348-X (Version None)
Quarter: 2006Q1

REPORT INFORMATION
  Report Type: 
  Country: None (occurrence: None)
  Receive Date: 20060201
  Receipt Date: 20051228
  Transmission Date: 20060701
  Serious: No
  Sender: FDA-Public Use
  Company Number: 2005PV006354

PATIENT
  Age: 39 Year
  Sex: Male
  Weight: 108.8633 kg

DRUGS (7)
  1. BYETTA [Suspect]
     Indication: DIABETES MELLITUS NON-INSULIN-DEPENDENT
     Dosage: 5 MCG;BID;SC
     Route: 058
     Dates: start: 20051201
  2. HUMULIN N [Concomitant]
  3. HUMULIN R [Concomitant]
  4. LOPID [Concomitant]
  5. TRICOR [Concomitant]
  6. METFORMIN [Concomitant]
  7. GLYBURIDE [Concomitant]

REACTIONS (2)
  - BLOOD GLUCOSE DECREASED [None]
  - INJECTION SITE RASH [None]
